FAERS Safety Report 17353610 (Version 2)
Quarter: 2020Q1

REPORT INFORMATION
  Report Type: Spontaneous
  Country: JP (occurrence: JP)
  Receive Date: 20200131
  Receipt Date: 20200207
  Transmission Date: 20200409
  Serious: Yes (Hospitalization, Other)
  Sender: FDA-Public Use
  Company Number: JP-ASTRAZENECA-2020SE13579

PATIENT
  Sex: Female

DRUGS (2)
  1. FASLODEX [Suspect]
     Active Substance: FULVESTRANT
     Indication: BREAST CANCER FEMALE
     Dosage: DOSE UNKNOWN
     Route: 030
  2. IBRANCE [Suspect]
     Active Substance: PALBOCICLIB
     Indication: BREAST CANCER FEMALE
     Dosage: DOSE UNKNOWN
     Route: 048

REACTIONS (1)
  - Metastatic gastric cancer [Unknown]
